FAERS Safety Report 6833803-4 (Version None)
Quarter: 2010Q3

REPORT INFORMATION
  Report Type: 
  Country: None (occurrence: None)
  Receive Date: 20100712
  Receipt Date: 20070404
  Transmission Date: 20110219
  Serious: No
  Sender: FDA-Public Use
  Company Number: US-PFIZER INC-2007027394

PATIENT
  Sex: Female
  Weight: 51.7 kg

DRUGS (7)
  1. CHANTIX [Suspect]
     Indication: SMOKING CESSATION THERAPY
     Dates: start: 20070320, end: 20070101
  2. IBANDRONATE SODIUM [Concomitant]
  3. TUMS [Concomitant]
  4. PRILOSEC [Concomitant]
  5. PLAVIX [Concomitant]
  6. ZETIA [Concomitant]
  7. NIACIN [Concomitant]

REACTIONS (1)
  - NAUSEA [None]
